FAERS Safety Report 14850077 (Version 1)
Quarter: 2018Q2

REPORT INFORMATION
  Report Type: Spontaneous
  Country: CA (occurrence: CA)
  Receive Date: 20180504
  Receipt Date: 20180504
  Transmission Date: 20180711
  Serious: Yes (Disabling, Other)
  Sender: FDA-Public Use
  Company Number: CA-TEVA-2018-CA-887636

PATIENT
  Age: 39 Year
  Sex: Female
  Weight: 113.5 kg

DRUGS (9)
  1. SANDOZ CIPROFLOXACIN [Suspect]
     Active Substance: CIPROFLOXACIN
     Indication: INFECTION
  2. APO-QUETIAPINE [Suspect]
     Active Substance: QUETIAPINE
     Indication: SCHIZOPHRENIA
     Route: 048
  3. SANDOZ AZITHROMYCIN [Suspect]
     Active Substance: AZITHROMYCIN
     Route: 065
  4. SANDOZ CIPROFLOXACIN [Suspect]
     Active Substance: CIPROFLOXACIN
     Indication: NASOPHARYNGITIS
     Route: 048
  5. RISPERIDONE. [Concomitant]
     Active Substance: RISPERIDONE
  6. ZYPREXA [Concomitant]
     Active Substance: OLANZAPINE
  7. TEVA-QUETIAPINE [Suspect]
     Active Substance: QUETIAPINE
     Indication: SCHIZOPHRENIA
     Route: 048
  8. EPIVAL [Concomitant]
     Active Substance: DIVALPROEX SODIUM
  9. AMOXICILLIN. [Concomitant]
     Active Substance: AMOXICILLIN

REACTIONS (11)
  - Blood creatinine increased [Not Recovered/Not Resolved]
  - Diarrhoea [Not Recovered/Not Resolved]
  - Hypertension [Not Recovered/Not Resolved]
  - Renal impairment [Not Recovered/Not Resolved]
  - Obesity [Not Recovered/Not Resolved]
  - Flank pain [Not Recovered/Not Resolved]
  - Nausea [Not Recovered/Not Resolved]
  - Haematocrit decreased [Not Recovered/Not Resolved]
  - Haemoglobin decreased [Not Recovered/Not Resolved]
  - Infection [Not Recovered/Not Resolved]
  - Renal disorder [Not Recovered/Not Resolved]
